FAERS Safety Report 7609742-8 (Version None)
Quarter: 2011Q3

REPORT INFORMATION
  Report Type: 
  Country: None (occurrence: None)
  Receive Date: 20110714
  Receipt Date: 20110708
  Transmission Date: 20111222
  Serious: Yes (Hospitalization, Disabling)
  Sender: FDA-Public Use
  Company Number: US-B.I. PHARMACEUTICALS,INC./RIDGEFIELD-2010-BP-08692BP

PATIENT
  Sex: Female
  Weight: 54.43 kg

DRUGS (3)
  1. MIRAPEX [Suspect]
     Indication: ESSENTIAL TREMOR
  2. MIRAPEX [Suspect]
     Indication: RESTLESS LEGS SYNDROME
  3. MIRAPEX [Suspect]
     Indication: PARKINSON'S DISEASE
     Dosage: 0.125 MG
     Route: 048
     Dates: start: 20020218, end: 20090721

REACTIONS (35)
  - OBSESSIVE-COMPULSIVE DISORDER [None]
  - CARDIAC FAILURE CONGESTIVE [None]
  - RENAL FAILURE [None]
  - ABDOMINAL PAIN UPPER [None]
  - HEPATIC ENZYME INCREASED [None]
  - MENTAL DISORDER [None]
  - ALVEOLITIS ALLERGIC [None]
  - INTERSTITIAL LUNG DISEASE [None]
  - PATHOLOGICAL GAMBLING [None]
  - DISABILITY [None]
  - EMOTIONAL DISTRESS [None]
  - ASTHENIA [None]
  - DEPRESSION [None]
  - PAIN [None]
  - FATIGUE [None]
  - TRAUMATIC LUNG INJURY [None]
  - DIVORCED [None]
  - MULTIPLE INJURIES [None]
  - SUDDEN ONSET OF SLEEP [None]
  - LETHARGY [None]
  - DYSPNOEA [None]
  - IMPAIRED WORK ABILITY [None]
  - ECONOMIC PROBLEM [None]
  - NO THERAPEUTIC RESPONSE [None]
  - TOXICITY TO VARIOUS AGENTS [None]
  - FEAR [None]
  - ADVERSE DRUG REACTION [None]
  - RESPIRATORY FAILURE [None]
  - CHROMATURIA [None]
  - SOMNOLENCE [None]
  - NAUSEA [None]
  - LUNG INFILTRATION [None]
  - LOSS OF EMPLOYMENT [None]
  - COMPULSIVE SHOPPING [None]
  - SOCIAL AVOIDANT BEHAVIOUR [None]
